FAERS Safety Report 7497162-9 (Version None)
Quarter: 2011Q2

REPORT INFORMATION
  Report Type: 
  Country: None (occurrence: None)
  Receive Date: 20110523
  Receipt Date: 20110513
  Transmission Date: 20111010
  Serious: Yes (Hospitalization, Other)
  Sender: FDA-Public Use
  Company Number: US-ASTRAZENECA-2011SE09863

PATIENT
  Age: 64 Year
  Sex: Female
  Weight: 62.6 kg

DRUGS (5)
  1. NEXIUM [Suspect]
     Indication: BARRETT'S OESOPHAGUS
     Route: 048
     Dates: end: 20110216
  2. CARAFATE [Concomitant]
  3. NEXIUM [Suspect]
     Route: 048
  4. NEXIUM [Suspect]
     Route: 048
  5. NEXIUM [Suspect]
     Indication: GASTROOESOPHAGEAL REFLUX DISEASE
     Route: 048
     Dates: end: 20110216

REACTIONS (15)
  - DIARRHOEA [None]
  - IRRITABLE BOWEL SYNDROME [None]
  - CONSTIPATION [None]
  - DRUG DOSE OMISSION [None]
  - VASCULAR STENT INSERTION [None]
  - DEVICE OCCLUSION [None]
  - THROMBOSIS [None]
  - DIVERTICULUM [None]
  - NERVE GRAFT [None]
  - PNEUMONIA ASPIRATION [None]
  - BRADYCARDIA [None]
  - PULMONARY OEDEMA [None]
  - ABNORMAL LOSS OF WEIGHT [None]
  - OFF LABEL USE [None]
  - OEDEMA PERIPHERAL [None]
